FAERS Safety Report 9658812 (Version 2)
Quarter: 2013Q4

REPORT INFORMATION
  Report Type: Spontaneous
  Country: US (occurrence: US)
  Receive Date: 20131030
  Receipt Date: 20131030
  Transmission Date: 20140711
  Serious: No
  Sender: FDA-Public Use
  Company Number: US-PURDUE-USA-2011-0078112

PATIENT
  Age: 48 Year
  Sex: Male
  Weight: 83.9 kg

DRUGS (3)
  1. OXYCONTIN (NDA 22-272) [Suspect]
     Indication: PAIN
     Dosage: 50 MG, Q12H
     Dates: start: 20100405
  2. PERCOCET /00446701/ [Suspect]
     Indication: PAIN
     Dosage: 5/325 QID
     Dates: start: 20100405
  3. GABAPENTIN [Concomitant]
     Indication: PAIN
     Dosage: 300 UNK, TID
     Dates: start: 20100405

REACTIONS (2)
  - Blood testosterone decreased [Unknown]
  - Androgen deficiency [Recovered/Resolved]
